FAERS Safety Report 9181762 (Version 1)
Quarter: 2013Q1

REPORT INFORMATION
  Report Type: Spontaneous
  Country: US (occurrence: None)
  Receive Date: 20130321
  Receipt Date: 20130321
  Transmission Date: 20140127
  Serious: No
  Sender: FDA-Public Use
  Company Number: None

PATIENT
  Sex: Female
  Weight: 18 kg

DRUGS (5)
  1. DAPSONE [Suspect]
     Route: 048
     Dates: start: 20120924, end: 20121106
  2. DIPHENHYDRAMINE [Concomitant]
  3. ACETAMINOPHEN [Concomitant]
  4. MERCAPTOPURINE [Concomitant]
  5. LIDOCAINE-PRILOCAINE [Concomitant]

REACTIONS (4)
  - Pyrexia [None]
  - Neutropenia [None]
  - Oxygen saturation decreased [None]
  - Methaemoglobinaemia [None]
